FAERS Safety Report 4446084-6 (Version None)
Quarter: 2004Q3

REPORT INFORMATION
  Report Type: 
  Country: None (occurrence: None)
  Receive Date: 20040910
  Receipt Date: 20040831
  Transmission Date: 20050211
  Serious: Yes (Other)
  Sender: FDA-Public Use
  Company Number: DE-AMGEN-UK088248

PATIENT
  Sex: Female
  Weight: 86 kg

DRUGS (6)
  1. NEULASTA [Suspect]
     Indication: CHEMOTHERAPY
     Route: 058
     Dates: start: 20040720
  2. EPIRUBICIN [Concomitant]
     Route: 042
     Dates: start: 20040719
  3. CYCLOPHOSPHAMIDE [Concomitant]
     Route: 042
     Dates: start: 20040719
  4. DEXAMETHASONE [Concomitant]
     Route: 042
     Dates: start: 20040719
  5. ZOFRAN [Concomitant]
     Dates: start: 20040719
  6. UROMITEXAN [Concomitant]
     Dates: start: 20040719

REACTIONS (4)
  - ALANINE AMINOTRANSFERASE INCREASED [None]
  - ASPARTATE AMINOTRANSFERASE INCREASED [None]
  - BLOOD ALKALINE PHOSPHATASE INCREASED [None]
  - HEPATIC ENZYME INCREASED [None]
